FAERS Safety Report 7769171-3 (Version None)
Quarter: 2011Q3

REPORT INFORMATION
  Report Type: 
  Country: None (occurrence: None)
  Receive Date: 20110922
  Receipt Date: 20110914
  Transmission Date: 20111222
  Serious: Yes (Other)
  Sender: FDA-Public Use
  Company Number: US-ROCHE-790451

PATIENT
  Sex: Male

DRUGS (1)
  1. AVASTIN [Suspect]
     Route: 042
     Dates: start: 20110708

REACTIONS (4)
  - VISUAL IMPAIRMENT [None]
  - ENDOPHTHALMITIS [None]
  - VISUAL ACUITY REDUCED [None]
  - PRODUCT QUALITY ISSUE [None]
